FAERS Safety Report 10896040 (Version 1)
Quarter: 2015Q1

REPORT INFORMATION
  Report Type: Spontaneous
  Country: JP (occurrence: JP)
  Receive Date: 20150308
  Receipt Date: 20150308
  Transmission Date: 20150721
  Serious: Yes (Other)
  Sender: FDA-Public Use
  Company Number: JP-MYLANLABS-2015M1002228

PATIENT

DRUGS (5)
  1. EPIPEN [Suspect]
     Active Substance: EPINEPHRINE
     Indication: COUGH
     Dosage: 0.3 MG, UNK
     Route: 030
     Dates: start: 20150116, end: 20150116
  2. EPIPEN [Suspect]
     Active Substance: EPINEPHRINE
     Indication: PRURITUS GENERALISED
  3. EPIPEN [Suspect]
     Active Substance: EPINEPHRINE
     Indication: RESPIRATORY DISORDER
  4. CLARITYN                           /00917501/ [Suspect]
     Active Substance: LORATADINE
     Indication: DERMATITIS ATOPIC
  5. CLARITYN /00917501/ [Suspect]
     Active Substance: LORATADINE
     Indication: URTICARIA
     Dosage: 10 MG, QD
     Route: 048
     Dates: start: 20141222

REACTIONS (2)
  - Iliotibial band syndrome [Recovering/Resolving]
  - Injection site pain [None]

NARRATIVE: CASE EVENT DATE: 20150117
